FAERS Safety Report 15139271 (Version 3)
Quarter: 2018Q3

REPORT INFORMATION
  Report Type: Spontaneous
  Country: US (occurrence: US)
  Receive Date: 20180713
  Receipt Date: 20180723
  Transmission Date: 20181010
  Serious: No
  Sender: FDA-Public Use
  Company Number: US-PFIZER INC-2018281532

PATIENT
  Age: 59 Year
  Sex: Female

DRUGS (1)
  1. XELJANZ XR [Suspect]
     Active Substance: TOFACITINIB CITRATE
     Indication: BREAST CANCER
     Dosage: UNK, 1X/DAY
     Dates: start: 201806

REACTIONS (2)
  - Product use in unapproved indication [Unknown]
  - Hot flush [Unknown]

NARRATIVE: CASE EVENT DATE: 201806
